FAERS Safety Report 9513628 (Version 6)
Quarter: 2013Q4

REPORT INFORMATION
  Report Type: Spontaneous
  Country: JP (occurrence: JP)
  Receive Date: 20130910
  Receipt Date: 20131120
  Transmission Date: 20140711
  Serious: Yes (Hospitalization)
  Sender: FDA-Public Use
  Company Number: JP-GLAXOSMITHKLINE-B0914525A

PATIENT
  Age: 39 Year
  Sex: Male
  Weight: 69 kg

DRUGS (4)
  1. LAMICTAL [Suspect]
     Indication: SCHIZOAFFECTIVE DISORDER
     Dosage: 25MG PER DAY
     Route: 048
     Dates: start: 20130501, end: 20130515
  2. LAMICTAL [Suspect]
     Indication: SCHIZOAFFECTIVE DISORDER
     Dosage: 50MG PER DAY
     Route: 048
     Dates: start: 20130516, end: 20130730
  3. LITHIUM CARBONATE [Concomitant]
     Dosage: 400MG TWICE PER DAY
     Route: 048
     Dates: start: 20120229
  4. QUETIAPINE FUMARATE [Concomitant]
     Route: 048
     Dates: end: 20130807

REACTIONS (7)
  - Drug reaction with eosinophilia and systemic symptoms [Recovering/Resolving]
  - Pyrexia [Recovering/Resolving]
  - Rash generalised [Recovering/Resolving]
  - Drug eruption [Recovering/Resolving]
  - Condition aggravated [Recovering/Resolving]
  - Hepatic function abnormal [Recovering/Resolving]
  - Human herpesvirus 6 infection [Recovering/Resolving]
